FAERS Safety Report 18912997 (Version 1)
Quarter: 2021Q1

REPORT INFORMATION
  Report Type: Spontaneous
  Country: US (occurrence: US)
  Receive Date: 20210218
  Receipt Date: 20210218
  Transmission Date: 20210420
  Serious: Yes (Other)
  Sender: FDA-Public Use
  Company Number: US-NOVEN PHARMACEUTICALS, INC.-2020US009376

PATIENT
  Age: 6 Year
  Sex: Female
  Weight: 25.85 kg

DRUGS (6)
  1. DAYTRANA [Suspect]
     Active Substance: METHYLPHENIDATE
     Dosage: 2 PATCH OF 10 MG FOR 9 HOURS, DAILY
     Route: 062
     Dates: start: 2020, end: 2020
  2. DAYTRANA [Suspect]
     Active Substance: METHYLPHENIDATE
     Dosage: 20 MG, 1 PATCH FOR 9 HOURS, DAILY
     Route: 062
     Dates: start: 2020, end: 2020
  3. DAYTRANA [Suspect]
     Active Substance: METHYLPHENIDATE
     Dosage: 10 MG,1 PATCH FOR 9 HOURS, DAILY
     Route: 062
     Dates: start: 202005
  4. DAYTRANA [Suspect]
     Active Substance: METHYLPHENIDATE
     Dosage: 20 MG, 1 PATCH FOR 9 HOURS, DAILY
     Route: 062
     Dates: start: 2020, end: 2020
  5. DAYTRANA [Suspect]
     Active Substance: METHYLPHENIDATE
     Indication: ATTENTION DEFICIT HYPERACTIVITY DISORDER
     Dosage: 20MG/9 HOURS, 1 PATCH DAILY
     Route: 062
     Dates: start: 20200922
  6. DAYTRANA [Suspect]
     Active Substance: METHYLPHENIDATE
     Dosage: 30 MG, 1 PATCH FOR 9 HOURS, DAILY
     Route: 062
     Dates: start: 2020, end: 2020

REACTIONS (8)
  - Product quality issue [Not Recovered/Not Resolved]
  - Product administration error [Not Recovered/Not Resolved]
  - Application site erythema [Not Recovered/Not Resolved]
  - Product adhesion issue [Not Recovered/Not Resolved]
  - Application site irritation [Recovered/Resolved]
  - Application site rash [Recovered/Resolved]
  - Therapeutic product ineffective [Not Recovered/Not Resolved]
  - Application site pruritus [Recovered/Resolved]

NARRATIVE: CASE EVENT DATE: 202005
